FAERS Safety Report 8993024 (Version 2)
Quarter: 2013Q1

REPORT INFORMATION
  Report Type: Report from Study
  Country: CA (occurrence: CA)
  Receive Date: 20130102
  Receipt Date: 20130228
  Transmission Date: 20140127
  Serious: Yes (Other)
  Sender: FDA-Public Use
  Company Number: CA-JNJFOC-20121212993

PATIENT
  Age: 52 None
  Sex: Female
  Weight: 52 kg

DRUGS (3)
  1. REMICADE [Suspect]
     Indication: CROHN^S DISEASE
     Route: 042
     Dates: start: 20071001
  2. LOSEC [Concomitant]
     Route: 065
  3. PURINETHOL [Concomitant]
     Route: 065

REACTIONS (2)
  - Squamous cell carcinoma [Unknown]
  - Impaired healing [Unknown]
